FAERS Safety Report 20542970 (Version 1)
Quarter: 2022Q1

REPORT INFORMATION
  Report Type: Report from Study
  Country: US (occurrence: US)
  Receive Date: 20220302
  Receipt Date: 20220302
  Transmission Date: 20220424
  Serious: Yes (Other)
  Sender: FDA-Public Use
  Company Number: US-GILEAD-2022-0570587

PATIENT
  Age: 71 Year
  Sex: Female
  Weight: 50.5 kg

DRUGS (40)
  1. SOFOSBUVIR\VELPATASVIR [Suspect]
     Active Substance: SOFOSBUVIR\VELPATASVIR
     Indication: Product used for unknown indication
     Dosage: 1 DOSAGE FORM, 400 / 100 MG
     Route: 065
     Dates: start: 20180531, end: 20180823
  2. ACETAMINOPHEN [Concomitant]
     Active Substance: ACETAMINOPHEN
  3. AMIKACIN [Concomitant]
     Active Substance: AMIKACIN
     Indication: Mycobacterium abscessus infection
  4. AMLODIPINE [Concomitant]
     Active Substance: AMLODIPINE BESYLATE
  5. CALCIUM CARBONATE [Concomitant]
     Active Substance: CALCIUM CARBONATE
  6. COMBIVENT RESPIMAT [Concomitant]
     Active Substance: ALBUTEROL SULFATE\IPRATROPIUM BROMIDE
  7. CYCLOSPORINE [Concomitant]
     Active Substance: CYCLOSPORINE
  8. DIPHENHYDRAMINE [Concomitant]
     Active Substance: DIPHENHYDRAMINE
  9. DOXYCYCLINE [Concomitant]
     Active Substance: DOXYCYCLINE
     Indication: Ammonia increased
  10. FERROUS GLUCONATE [Concomitant]
     Active Substance: FERROUS GLUCONATE
  11. FEXOFENADINE [Concomitant]
     Active Substance: FEXOFENADINE HYDROCHLORIDE
  12. FUROSEMIDE [Concomitant]
     Active Substance: FUROSEMIDE
     Indication: Oedema
  13. HEPARIN [Concomitant]
     Active Substance: HEPARIN SODIUM
  14. HUMALOG [Concomitant]
     Active Substance: INSULIN LISPRO
  15. HYDROMORPHONE [Concomitant]
     Active Substance: HYDROMORPHONE
  16. IMIPENEM [Concomitant]
     Active Substance: IMIPENEM
     Indication: Mycobacterium abscessus infection
  17. LAMIVUDINE [Concomitant]
     Active Substance: LAMIVUDINE
  18. POLYETHYLENE GLYCOL 3350 [Concomitant]
     Active Substance: POLYETHYLENE GLYCOL 3350
  19. MAGNESIUM OXIDE [Concomitant]
     Active Substance: MAGNESIUM OXIDE
  20. MELATONIN [Concomitant]
     Active Substance: MELATONIN
  21. METHYLPREDNISOLONE [Concomitant]
     Active Substance: METHYLPREDNISOLONE
     Indication: Transplant rejection
  22. METOCLOPRAMIDE [Concomitant]
     Active Substance: METOCLOPRAMIDE
  23. METOPROLOL [Concomitant]
     Active Substance: METOPROLOL
     Indication: Atrial fibrillation
  24. MOXIFLOXACIN [Concomitant]
     Active Substance: MOXIFLOXACIN
     Indication: Ammonia increased
  25. MYFORTIC [Concomitant]
     Active Substance: MYCOPHENOLATE SODIUM
     Indication: Immunosuppression
  26. ONDANSETRON [Concomitant]
     Active Substance: ONDANSETRON
  27. PANTOPRAZOLE [Concomitant]
     Active Substance: PANTOPRAZOLE
  28. PLASMA-PLEX [Concomitant]
     Active Substance: PLASMA PROTEIN FRACTION (HUMAN)
     Indication: Immunosuppression
  29. PREDNISONE [Concomitant]
     Active Substance: PREDNISONE
     Indication: Immunosuppression
  30. PROLASTIN [Concomitant]
     Active Substance: .ALPHA.1-PROTEINASE INHIBITOR HUMAN
  31. ALBUTEROL [Concomitant]
     Active Substance: ALBUTEROL
  32. SENNA [Concomitant]
     Active Substance: SENNA LEAF\SENNOSIDES\SENNOSIDES A AND B
  33. SEPTRA [Concomitant]
     Active Substance: SULFAMETHOXAZOLE\TRIMETHOPRIM
  34. TIGECYCLINE [Concomitant]
     Active Substance: TIGECYCLINE
  35. TRANDOLAPRIL [Concomitant]
     Active Substance: TRANDOLAPRIL
  36. VACCINIA IMMUNE GLOBULIN HUMAN [Concomitant]
     Active Substance: VACCINIA IMMUNE GLOBULIN HUMAN
     Indication: Hypogammaglobulinaemia
  37. VALGANCICLOVIR [Concomitant]
     Active Substance: VALGANCICLOVIR
  38. VITAMIN D NOS [Concomitant]
     Active Substance: VITAMIN D NOS
  39. ZINC OXIDE [Concomitant]
     Active Substance: ZINC OXIDE
  40. ZOPICLONE [Concomitant]
     Active Substance: ZOPICLONE

REACTIONS (2)
  - Transplant rejection [Unknown]
  - Organising pneumonia [Unknown]

NARRATIVE: CASE EVENT DATE: 20180601
